FAERS Safety Report 11053345 (Version 3)
Quarter: 2015Q2

REPORT INFORMATION
  Report Type: Report from Study
  Country: BR (occurrence: BR)
  Receive Date: 20150421
  Receipt Date: 20150603
  Transmission Date: 20150821
  Serious: Yes (Hospitalization, Other)
  Sender: FDA-Public Use
  Company Number: BR-SA-2015SA050134

PATIENT
  Age: 66 Year
  Sex: Female
  Weight: 69 kg

DRUGS (13)
  1. SOLOSTAR [Concomitant]
     Active Substance: DEVICE
     Indication: TYPE 1 DIABETES MELLITUS
     Dates: start: 2010
  2. AZARGA [Concomitant]
     Active Substance: BRINZOLAMIDE\TIMOLOL MALEATE
     Indication: DIABETIC RETINOPATHY
     Route: 047
  3. NOVORAPID [Concomitant]
     Active Substance: INSULIN ASPART
  4. APIDRA [Suspect]
     Active Substance: INSULIN GLULISINE
     Indication: TYPE 1 DIABETES MELLITUS
     Dosage: DOSE/ FREQUENCY: 10 IU DAILY BEFORE LUNCH AND BEFORE DINNER
     Route: 065
     Dates: start: 2010
  5. ATORVASTATIN [Concomitant]
     Active Substance: ATORVASTATIN
     Indication: BLOOD CHOLESTEROL
     Route: 048
  6. ATENOLOL. [Concomitant]
     Active Substance: ATENOLOL
     Indication: STENT PLACEMENT
     Route: 048
  7. LOSARTAN [Concomitant]
     Active Substance: LOSARTAN
     Indication: BLOOD PRESSURE
     Route: 048
  8. AZOPT [Concomitant]
     Active Substance: BRINZOLAMIDE
     Indication: DIABETIC RETINOPATHY
     Route: 047
  9. LANTUS SOLOSTAR [Suspect]
     Active Substance: INSULIN GLARGINE
     Indication: TYPE 1 DIABETES MELLITUS
     Route: 058
     Dates: start: 2010
  10. PANTOPRAZOLE [Concomitant]
     Active Substance: PANTOPRAZOLE SODIUM
     Indication: ABDOMINAL DISCOMFORT
     Route: 048
  11. SOMALGIN [Suspect]
     Active Substance: ASPIRIN\DIHYDROXYALUMINUM AMINOACETATE ANHYDROUS\MAGNESIUM CARBONATE
     Route: 065
  12. LIPITOR [Concomitant]
     Active Substance: ATORVASTATIN CALCIUM
  13. OSTEOFORM [Concomitant]
     Indication: OSTEOPOROSIS
     Route: 048

REACTIONS (11)
  - Haemorrhage [Unknown]
  - Eye oedema [Unknown]
  - Ear disorder [Unknown]
  - Diabetic retinopathy [Not Recovered/Not Resolved]
  - Cataract operation [Unknown]
  - Injection site induration [Recovered/Resolved]
  - Anaemia [Unknown]
  - Glaucoma [Unknown]
  - Haematochezia [Unknown]
  - Hypoacusis [Unknown]
  - Injection site injury [Recovered/Resolved]

NARRATIVE: CASE EVENT DATE: 2011
